FAERS Safety Report 19480748 (Version 1)
Quarter: 2021Q3

REPORT INFORMATION
  Report Type: Spontaneous
  Country: DE (occurrence: DE)
  Receive Date: 20210701
  Receipt Date: 20210701
  Transmission Date: 20211014
  Serious: Yes (Other)
  Sender: FDA-Public Use
  Company Number: DE-SUN PHARMACEUTICAL INDUSTRIES LTD-2021RR-302633

PATIENT
  Age: 65 Year
  Sex: Female

DRUGS (6)
  1. GEMCITABINE. [Suspect]
     Active Substance: GEMCITABINE
     Dosage: 2025 MILLIGRAM/SQ. METER, 3 CYCLES
     Route: 065
     Dates: end: 201910
  2. GEMCITABINE. [Suspect]
     Active Substance: GEMCITABINE
     Indication: SOFT TISSUE SARCOMA
     Dosage: 1800 MILLIGRAM/SQ. METER, 2 CYCLES
     Route: 065
  3. DOXORUBICIN [Suspect]
     Active Substance: DOXORUBICIN
     Indication: SOFT TISSUE SARCOMA
     Dosage: 5 CYCLES
     Route: 065
     Dates: start: 201903
  4. BEVACIZUMAB. [Suspect]
     Active Substance: BEVACIZUMAB
     Indication: SOFT TISSUE SARCOMA
     Dosage: 5 CYCLES
     Route: 065
     Dates: start: 201903
  5. TAMOXIFEN [Concomitant]
     Active Substance: TAMOXIFEN
     Indication: BREAST CANCER
     Dosage: UNK
     Route: 065
     Dates: start: 201809
  6. DOCETAXEL. [Suspect]
     Active Substance: DOCETAXEL
     Indication: SOFT TISSUE SARCOMA
     Dosage: 2 CYCLES
     Route: 065

REACTIONS (4)
  - Mucosal inflammation [Unknown]
  - Haematotoxicity [Unknown]
  - Thrombotic microangiopathy [Unknown]
  - Disease progression [Unknown]
